FAERS Safety Report 17465632 (Version 1)
Quarter: 2020Q3

REPORT INFORMATION
  Report Type: Spontaneous
  Country: US (occurrence: US)
  Receive Date: 20200227
  Receipt Date: 20200227
  Transmission Date: 20201104
  Serious: Yes (Other)
  Sender: FDA-Public Use
  Company Number: US-INGENUS PHARMACEUTICALS, LLC-2020INF000028

PATIENT
  Age: 79 Year
  Sex: Male

DRUGS (2)
  1. REC?2282. [Suspect]
     Active Substance: REC-2282
     Indication: ACUTE MYELOID LEUKAEMIA
     Dosage: 40 MILLIGRAM, QD, ON DAYS 1, 3, 4, 5
     Route: 048
  2. DECITABINE. [Suspect]
     Active Substance: DECITABINE
     Indication: ACUTE MYELOID LEUKAEMIA
     Dosage: 20 MILLIGRAM/SQ. METER, QD, ON DAYS 6?15 OF EACH INDUCTION CYCLE
     Route: 042

REACTIONS (2)
  - Multiple organ dysfunction syndrome [Unknown]
  - Sepsis [Unknown]
